FAERS Safety Report 10512423 (Version 1)
Quarter: 2014Q4

REPORT INFORMATION
  Report Type: Report from Study
  Country: AT (occurrence: AT)
  Receive Date: 20141010
  Receipt Date: 20141010
  Transmission Date: 20150528
  Serious: Yes (Life-Threatening, Hospitalization, Other)
  Sender: FDA-Public Use
  Company Number: AT-ASTRAZENECA-2014SE76503

PATIENT
  Age: 41 Year
  Sex: Female

DRUGS (2)
  1. ASPIRIN (NON-AZ PRODUCT) [Suspect]
     Active Substance: ASPIRIN
     Indication: ACUTE CORONARY SYNDROME
     Route: 048
     Dates: start: 20140424
  2. TICAGRELOR [Suspect]
     Active Substance: TICAGRELOR
     Indication: ACUTE CORONARY SYNDROME
     Route: 048
     Dates: start: 20140429

REACTIONS (2)
  - Acute myocardial infarction [Recovered/Resolved]
  - Coronary artery restenosis [Recovered/Resolved]

NARRATIVE: CASE EVENT DATE: 20140711
